FAERS Safety Report 25768664 (Version 1)
Quarter: 2025Q3

REPORT INFORMATION
  Report Type: Spontaneous
  Country: EU (occurrence: EU)
  Receive Date: 20250905
  Receipt Date: 20250905
  Transmission Date: 20251020
  Serious: Yes (Death, Hospitalization)
  Sender: DAIICHI
  Company Number: None

PATIENT
  Age: 89 Year
  Sex: Female
  Weight: 76 kg

DRUGS (1)
  1. EDOXABAN [Suspect]
     Active Substance: EDOXABAN
     Indication: Atrial fibrillation
     Dosage: 30 MG, QD
     Route: 048

REACTIONS (4)
  - Fall [Fatal]
  - Injury [Fatal]
  - Haematoma [Fatal]
  - Arterial haemorrhage [Fatal]

NARRATIVE: CASE EVENT DATE: 20241224
